FAERS Safety Report 22287507 (Version 2)
Quarter: 2025Q2

REPORT INFORMATION
  Report Type: Spontaneous
  Country: US (occurrence: US)
  Receive Date: 20230505
  Receipt Date: 20250602
  Transmission Date: 20250717
  Serious: No
  Sender: SANOFI AVENTIS
  Company Number: US-SA-SAC20230502000174

PATIENT
  Age: 35 Year
  Sex: Female

DRUGS (13)
  1. DUPIXENT [Suspect]
     Active Substance: DUPILUMAB
     Indication: Dermatitis allergic
     Dosage: 300 MG, QOW
     Route: 058
     Dates: start: 20220706
  2. ESCITALOPRAM [Concomitant]
     Active Substance: ESCITALOPRAM OXALATE
  3. FOLIC ACID [Concomitant]
     Active Substance: FOLIC ACID
  4. LEXAPRO [Concomitant]
     Active Substance: ESCITALOPRAM OXALATE
  5. METHOTREXATE [Concomitant]
     Active Substance: METHOTREXATE
  6. OXYCODONE AND ACETAMINOPHEN [Concomitant]
     Active Substance: ACETAMINOPHEN\OXYCODONE HYDROCHLORIDE
  7. PHENTERMINE [Concomitant]
     Active Substance: PHENTERMINE
  8. TACROLIMUS [Concomitant]
     Active Substance: TACROLIMUS
  9. VITAMIN B COMPLEX [Concomitant]
     Active Substance: CYANOCOBALAMIN\DEXPANTHENOL\NIACINAMIDE\PYRIDOXINE HYDROCHLORIDE\RIBOFLAVIN 5^-PHOSPHATE SODIUM\THIA
  10. FERROUS SULFATE [Concomitant]
     Active Substance: FERROUS SULFATE
  11. JUNEL FE 1.5/30 [Concomitant]
     Active Substance: ETHINYL ESTRADIOL\NORETHINDRONE ACETATE
  12. BYDUREON [Concomitant]
     Active Substance: EXENATIDE
  13. CELEBREX [Concomitant]
     Active Substance: CELECOXIB

REACTIONS (4)
  - Infection [Not Recovered/Not Resolved]
  - Sweating fever [Not Recovered/Not Resolved]
  - Arthralgia [Not Recovered/Not Resolved]
  - Drug ineffective [Unknown]
